FAERS Safety Report 6616975-6 (Version None)
Quarter: 2010Q1

REPORT INFORMATION
  Report Type: 
  Country: None (occurrence: None)
  Receive Date: 20100302
  Receipt Date: 20090508
  Transmission Date: 20100710
  Serious: Yes (Other)
  Sender: FDA-Public Use
  Company Number: 2009-2684

PATIENT
  Age: 65 Year
  Sex: Female

DRUGS (8)
  1. APO-GO AMPOULES (APO-GO) (APOMORPHINE HYDROCHLORIDE) (APOMORPHINE HYDR [Suspect]
     Indication: PARKINSON'S DISEASE
     Dosage: 4MG PER HOUR FOR 14 HOURS PER DAY (56MG) (4 MG,1 IN 1 HR), SUBCUTANEOUS
     Route: 058
     Dates: start: 20060523
  2. LIPITOR [Suspect]
     Indication: TRANSIENT ISCHAEMIC ATTACK
     Dosage: 10 MG (10 MG,1 IN 1 D)
     Dates: start: 20060101
  3. MADOPAR DISP(MADOPAR /00349201/ (BENSERAZIDE HYDROCHLORIDE, LEVODOPA) [Concomitant]
  4. ASPIRIN [Concomitant]
  5. ARICEPT [Concomitant]
  6. STALEVO ((STALEVO) (CARBIDOPA, ENTACAPONE, LEVDOPA) [Concomitant]
  7. ELDEPRYL (SELEGILINE HYDROCHLORIDE) (SELEGILINE HYDROCHLORIDE) [Concomitant]
  8. SEROQUEL (QUETIAPINE) (QUETIAPINE) [Concomitant]

REACTIONS (2)
  - MOBILITY DECREASED [None]
  - OEDEMA PERIPHERAL [None]
